FAERS Safety Report 11893058 (Version 1)
Quarter: 2016Q1

REPORT INFORMATION
  Report Type: Spontaneous
  Country: IT (occurrence: IT)
  Receive Date: 20160106
  Receipt Date: 20160106
  Transmission Date: 20160526
  Serious: Yes (Death)
  Sender: FDA-Public Use
  Company Number: IT-SYNTHON BV-NL01PV15_40278

PATIENT
  Age: 38 Year
  Sex: Male

DRUGS (5)
  1. DELORAZEPAM [Interacting]
     Active Substance: DELORAZEPAM
     Indication: COMPLETED SUICIDE
     Dosage: UNK
  2. TRIAZOLAM. [Interacting]
     Active Substance: TRIAZOLAM
     Indication: COMPLETED SUICIDE
     Dosage: UNK
  3. ETHANOL [Interacting]
     Active Substance: ALCOHOL
     Indication: COMPLETED SUICIDE
     Dosage: UNK
  4. ZOLPIDEM [Suspect]
     Active Substance: ZOLPIDEM\ZOLPIDEM TARTRATE
     Indication: COMPLETED SUICIDE
     Dosage: UNK
  5. ALPRAZOLAM. [Interacting]
     Active Substance: ALPRAZOLAM
     Indication: COMPLETED SUICIDE
     Dosage: UNK

REACTIONS (2)
  - Drug interaction [Fatal]
  - Toxicity to various agents [Fatal]
